FAERS Safety Report 6599413-1 (Version None)
Quarter: 2010Q1

REPORT INFORMATION
  Report Type: 
  Country: None (occurrence: None)
  Receive Date: 20100216
  Receipt Date: 20100205
  Transmission Date: 20100710
  Serious: Yes (Death)
  Sender: FDA-Public Use
  Company Number: 2010SP007251

PATIENT
  Age: 82 Year
  Sex: Male

DRUGS (6)
  1. ORGARAN [Suspect]
     Indication: CARDIAC VALVE PROSTHESIS USER
     Dosage: 2000 IU; BID; SC
     Route: 058
     Dates: start: 20100104, end: 20100105
  2. CALCIIPARINE (HEPARIN CALCIUM) [Suspect]
     Indication: CARDIAC VALVE PROSTHESIS USER
     Dosage: QD; SC, QD; SC
     Route: 058
     Dates: start: 20091225, end: 20100101
  3. CALCIIPARINE (HEPARIN CALCIUM) [Suspect]
     Indication: CARDIAC VALVE PROSTHESIS USER
     Dosage: QD; SC, QD; SC
     Route: 058
     Dates: start: 20091223
  4. COUMADIN [Suspect]
     Indication: CARDIAC VALVE PROSTHESIS USER
     Dosage: PO; 1 MG; QD; 2 MG; QD
     Route: 048
     Dates: end: 20091219
  5. COUMADIN [Suspect]
     Indication: CARDIAC VALVE PROSTHESIS USER
     Dosage: PO; 1 MG; QD; 2 MG; QD
     Route: 048
     Dates: start: 20091225, end: 20100101
  6. COUMADIN [Suspect]
     Indication: CARDIAC VALVE PROSTHESIS USER
     Dosage: PO; 1 MG; QD; 2 MG; QD
     Route: 048
     Dates: start: 20091223

REACTIONS (13)
  - ACUTE PULMONARY OEDEMA [None]
  - CONFUSIONAL STATE [None]
  - DIABETES MELLITUS [None]
  - EPISTAXIS [None]
  - HAEMOGLOBIN DECREASED [None]
  - HAEMORRHAGIC ANAEMIA [None]
  - INCORRECT DOSE ADMINISTERED [None]
  - INFECTION [None]
  - INTERNATIONAL NORMALISED RATIO INCREASED [None]
  - RENAL FAILURE ACUTE [None]
  - SKIN NODULE [None]
  - SUBCUTANEOUS HAEMATOMA [None]
  - THROMBOCYTOPENIA [None]
